FAERS Safety Report 7250218-8 (Version None)
Quarter: 2011Q1

REPORT INFORMATION
  Report Type: 
  Country: None (occurrence: None)
  Receive Date: 20110128
  Receipt Date: 20110120
  Transmission Date: 20110831
  Serious: Yes (Disabling)
  Sender: FDA-Public Use
  Company Number: ES-BAYER-2011-007121

PATIENT
  Age: 51 Year
  Sex: Male

DRUGS (4)
  1. NEXAVAR [Suspect]
     Indication: HEPATIC NEOPLASM MALIGNANT NON-RESECTABLE
     Dosage: 400 MG, BID
     Dates: start: 20090701, end: 20090801
  2. PROPRANOLOL [Concomitant]
  3. NEXAVAR [Suspect]
     Dosage: 200 MG, BID
     Dates: start: 20090801, end: 20090901
  4. ISOSORBIDE MONONITRATE [Concomitant]

REACTIONS (1)
  - MYOSITIS [None]
